FAERS Safety Report 6445384-8 (Version None)
Quarter: 2009Q4

REPORT INFORMATION
  Report Type: 
  Country: None (occurrence: None)
  Receive Date: 20091118
  Receipt Date: 20091105
  Transmission Date: 20100525
  Serious: Yes (Other)
  Sender: FDA-Public Use
  Company Number: PHHY2009GB40667

PATIENT
  Sex: Male

DRUGS (1)
  1. TEGRETOL [Suspect]
     Dosage: 200 MG, BID
     Route: 048
     Dates: start: 20010101

REACTIONS (7)
  - ANXIETY [None]
  - ARTHRITIS [None]
  - BLOOD PRESSURE INCREASED [None]
  - DEPRESSION [None]
  - EMOTIONAL DISORDER [None]
  - PAIN IN EXTREMITY [None]
  - TRANSURETHRAL PROSTATECTOMY [None]
